FAERS Safety Report 9688040 (Version 2)
Quarter: 2014Q1

REPORT INFORMATION
  Report Type: Report from Study
  Country: US (occurrence: US)
  Receive Date: 20131114
  Receipt Date: 20140203
  Transmission Date: 20141002
  Serious: Yes (Other)
  Sender: FDA-Public Use
  Company Number: PHEH2013US023789

PATIENT
  Age: 80 Year
  Sex: Female

DRUGS (2)
  1. GLEEVEC [Suspect]
     Indication: CHRONIC MYELOID LEUKAEMIA
     Dosage: 400 MG, DAILY
     Route: 048
  2. WARFARIN SODIUM [Interacting]
     Dosage: UNK UKN, UNK

REACTIONS (5)
  - Blood disorder [Unknown]
  - Syncope [Unknown]
  - Hypotension [Unknown]
  - Drug interaction [Unknown]
  - International normalised ratio increased [Unknown]
